FAERS Safety Report 5712994-2 (Version None)
Quarter: 2008Q2

REPORT INFORMATION
  Report Type: 
  Country: None (occurrence: None)
  Receive Date: 20080418
  Receipt Date: 20080411
  Transmission Date: 20081010
  Serious: Yes (Death, Other)
  Sender: FDA-Public Use
  Company Number: 062-C5013-08011348

PATIENT
  Age: 71 Year
  Sex: Male

DRUGS (6)
  1. CC-5013\PLACEBO (LENALIDOMIDE) (CAPSULES) [Suspect]
     Indication: MYELODYSPLASTIC SYNDROME
     Dosage: ORAL
     Route: 048
     Dates: start: 20070518, end: 20070605
  2. DIGOXIN [Concomitant]
  3. PANTOPRAZOLE SODIUM [Concomitant]
  4. NEXIUM [Concomitant]
  5. EXJADE [Concomitant]
  6. METOHEXAL (METOPROLOL TARTRATE) [Concomitant]

REACTIONS (17)
  - ACUTE MYELOID LEUKAEMIA [None]
  - ANAEMIA [None]
  - ARRHYTHMIA [None]
  - ATRIAL FIBRILLATION [None]
  - ATRIOVENTRICULAR BLOCK COMPLETE [None]
  - BLOOD CALCIUM DECREASED [None]
  - BLOOD SODIUM DECREASED [None]
  - BRONCHITIS [None]
  - CITROBACTER INFECTION [None]
  - DISEASE PROGRESSION [None]
  - LEUKOCYTOSIS [None]
  - ORAL CANDIDIASIS [None]
  - PERFORMANCE STATUS DECREASED [None]
  - PNEUMONIA [None]
  - REFRACTORY ANAEMIA [None]
  - THROMBOCYTOPENIA [None]
  - URINARY TRACT INFECTION [None]
